FAERS Safety Report 9540130 (Version 2)
Quarter: 2013Q4

REPORT INFORMATION
  Report Type: Report from Study
  Country: JP (occurrence: JP)
  Receive Date: 20130920
  Receipt Date: 20131217
  Transmission Date: 20140711
  Serious: Yes (Other)
  Sender: FDA-Public Use
  Company Number: JP-JNJFOC-20130909793

PATIENT
  Age: 41 Year
  Sex: Male

DRUGS (20)
  1. PREZISTA NAIVE [Suspect]
     Indication: HIV INFECTION
     Route: 048
     Dates: start: 20120928
  2. LOPEMIN [Concomitant]
     Indication: DIARRHOEA
     Route: 048
     Dates: start: 20120401
  3. KALETRA [Concomitant]
     Indication: HIV INFECTION
     Route: 048
     Dates: start: 20110401, end: 20120927
  4. KALETRA [Concomitant]
     Indication: HIV INFECTION
     Route: 048
     Dates: start: 20090227, end: 20110331
  5. ZITHROMAC [Concomitant]
     Indication: HIV INFECTION
     Route: 048
     Dates: start: 20090203, end: 20090521
  6. TRUVADA [Concomitant]
     Indication: HIV INFECTION
     Route: 048
     Dates: start: 20090227
  7. NORVIR [Concomitant]
     Indication: HIV INFECTION
     Route: 048
     Dates: start: 20120928
  8. BIOFERMIN [Concomitant]
     Indication: DIARRHOEA
     Route: 048
     Dates: start: 20120401
  9. MYONAL [Concomitant]
     Indication: HEADACHE
     Route: 048
     Dates: start: 20120401, end: 20120401
  10. DEPAS [Concomitant]
     Indication: HEADACHE
     Route: 048
     Dates: start: 20120401, end: 20120401
  11. LOXOPROFEN [Concomitant]
     Indication: HEADACHE
     Route: 048
     Dates: start: 20120401, end: 20120401
  12. JZOLOFT [Concomitant]
     Indication: DEPRESSION
     Route: 048
  13. RIZE [Concomitant]
     Indication: DEPRESSION
     Route: 065
  14. MYSLEE [Concomitant]
     Indication: DEPRESSION
     Route: 065
  15. LENDORMIN [Concomitant]
     Indication: DEPRESSION
     Route: 065
  16. SILECE [Concomitant]
     Indication: DEPRESSION
     Route: 065
  17. DOGMATYL [Concomitant]
     Indication: DEPRESSION
     Route: 065
  18. TOLEDOMIN [Concomitant]
     Indication: DEPRESSION
     Route: 065
  19. REMERON [Concomitant]
     Indication: DEPRESSION
     Route: 048
  20. SOLANAX [Concomitant]
     Indication: DEPRESSION
     Route: 048

REACTIONS (1)
  - Calculus ureteric [Not Recovered/Not Resolved]
